FAERS Safety Report 5975209-6 (Version None)
Quarter: 2008Q4

REPORT INFORMATION
  Report Type: 
  Country: None (occurrence: None)
  Receive Date: 20081202
  Receipt Date: 20081125
  Transmission Date: 20090506
  Serious: Yes (Hospitalization)
  Sender: FDA-Public Use
  Company Number: JP-ABBOTT-08P-087-0485862-00

PATIENT
  Age: 24 Month
  Sex: Female

DRUGS (10)
  1. CEFDINIR [Suspect]
     Indication: BRONCHITIS
     Route: 048
     Dates: start: 20081018, end: 20081024
  2. BRUFEN [Suspect]
     Indication: BRONCHITIS
     Route: 048
     Dates: start: 20081024, end: 20081026
  3. CEFDITOREN PIVOXIL [Suspect]
     Indication: BRONCHITIS
     Route: 048
     Dates: start: 20081024, end: 20081026
  4. CARBOCISTEINE [Concomitant]
     Indication: DRUG USE FOR UNKNOWN INDICATION
     Route: 048
     Dates: start: 20081018, end: 20081024
  5. ENTERONON R [Concomitant]
     Indication: DRUG USE FOR UNKNOWN INDICATION
     Route: 048
     Dates: start: 20081018, end: 20081024
  6. CLEMASTINE FUMARATE [Concomitant]
     Indication: DRUG USE FOR UNKNOWN INDICATION
     Route: 048
     Dates: start: 20081018, end: 20081024
  7. TULOBUTEROL HYDROCHLORIDE [Concomitant]
     Indication: DRUG USE FOR UNKNOWN INDICATION
     Route: 048
     Dates: start: 20081018, end: 20081024
  8. TULOBUTEROL HYDROCHLORIDE [Concomitant]
     Dates: start: 20081024, end: 20081026
  9. LEBENIN [Concomitant]
     Indication: DRUG USE FOR UNKNOWN INDICATION
     Route: 048
     Dates: start: 20081024, end: 20081026
  10. CYSTEINE [Concomitant]
     Indication: DRUG USE FOR UNKNOWN INDICATION
     Dates: start: 20081024, end: 20081026

REACTIONS (3)
  - ANAEMIA HAEMOLYTIC AUTOIMMUNE [None]
  - JAUNDICE [None]
  - PALLOR [None]
